FAERS Safety Report 4593868-X (Version None)
Quarter: 2005Q1

REPORT INFORMATION
  Report Type: 
  Country: None (occurrence: None)
  Receive Date: 20050301
  Receipt Date: 20050214
  Transmission Date: 20050727
  Serious: Yes (Hospitalization)
  Sender: FDA-Public Use
  Company Number: FR-ROCHE-395215

PATIENT
  Age: 36 Year
  Sex: Female
  Weight: 54 kg

DRUGS (10)
  1. VALIUM [Suspect]
     Dosage: 90 DROPS PER DAY
     Route: 048
     Dates: start: 20041201
  2. VALIUM [Suspect]
     Route: 048
     Dates: start: 20041203
  3. VALIUM [Suspect]
     Dosage: 60 DROPS PER DAY
     Route: 048
     Dates: start: 20041205
  4. VALIUM [Suspect]
     Route: 048
     Dates: start: 20041207, end: 20041215
  5. DEPAKOTE [Suspect]
     Indication: MANIA
     Route: 048
     Dates: start: 20041207
  6. DEPAKOTE [Suspect]
     Route: 048
     Dates: start: 20041211, end: 20041216
  7. IMOVANE [Suspect]
     Indication: DRUG USE FOR UNKNOWN INDICATION
     Route: 048
     Dates: start: 20041128, end: 20041216
  8. ZYPREXA [Concomitant]
     Route: 048
     Dates: start: 20041128
  9. DEROXAT [Concomitant]
     Route: 048
     Dates: start: 20041203, end: 20041207
  10. TERCIAN [Concomitant]
     Dosage: 40MG/ML
     Dates: start: 20041128, end: 20041130

REACTIONS (4)
  - COMA [None]
  - ENCEPHALOPATHY [None]
  - MANIA [None]
  - SEDATION [None]
